FAERS Safety Report 24197365 (Version 1)
Quarter: 2024Q3

REPORT INFORMATION
  Report Type: Spontaneous
  Country: ES (occurrence: A1)
  Receive Date: 20240810
  Receipt Date: 20240810
  Transmission Date: 20241017
  Serious: Yes (Other)
  Sender: BRECKENRIDGE
  Company Number: A1-Breckenridge Pharmaceutical, Inc.-2160259

PATIENT

DRUGS (6)
  1. UNSPECIFIED INGREDIENT [Suspect]
     Active Substance: UNSPECIFIED INGREDIENT
     Route: 048
  2. ELIQUIS [Suspect]
     Active Substance: APIXABAN
  3. LATANOPROST [Concomitant]
     Active Substance: LATANOPROST
  4. SIMVASTATIN [Concomitant]
     Active Substance: SIMVASTATIN
  5. DICLOFENAC SODIUM [Concomitant]
     Active Substance: DICLOFENAC\DICLOFENAC SODIUM
  6. BISOPROLOL. [Suspect]
     Active Substance: BISOPROLOL FUMARATE

REACTIONS (2)
  - Hyponatraemia [Unknown]
  - Fall [Unknown]
